FAERS Safety Report 21747266 (Version 1)
Quarter: 2022Q4

REPORT INFORMATION
  Report Type: Report from Study
  Country: FR (occurrence: FR)
  Receive Date: 20221219
  Receipt Date: 20221219
  Transmission Date: 20230113
  Serious: Yes (Hospitalization)
  Sender: FDA-Public Use
  Company Number: FR-JNJFOC-20221158374

PATIENT
  Age: 59 Year
  Sex: Male

DRUGS (11)
  1. SPRAVATO [Suspect]
     Active Substance: ESKETAMINE
     Indication: Depression
     Dosage: 1 DOSE
     Dates: start: 20220727, end: 20220727
  2. SPRAVATO [Suspect]
     Active Substance: ESKETAMINE
     Dosage: 3 DOSES
     Dates: start: 20220729, end: 20220809
  3. SPRAVATO [Suspect]
     Active Substance: ESKETAMINE
     Dosage: 1 DOSES
     Dates: start: 20220817, end: 20220817
  4. SPRAVATO [Suspect]
     Active Substance: ESKETAMINE
     Dosage: 3 DOSES
     Dates: start: 20220820, end: 20220829
  5. SPRAVATO [Suspect]
     Active Substance: ESKETAMINE
     Dosage: 5 DOSES
     Dates: start: 20220908, end: 20221005
  6. SPRAVATO [Suspect]
     Active Substance: ESKETAMINE
     Dosage: 1 DOSES
     Dates: start: 20221008, end: 20221008
  7. SPRAVATO [Suspect]
     Active Substance: ESKETAMINE
     Dosage: 1 DOSES
     Dates: start: 20221015, end: 20221015
  8. SPRAVATO [Suspect]
     Active Substance: ESKETAMINE
     Dosage: 3 DOSES
     Dates: start: 20221018, end: 20221025
  9. FLUVOXAMINE [Concomitant]
     Active Substance: FLUVOXAMINE
     Dates: start: 20220712, end: 20220719
  10. OLANZAPINE [Concomitant]
     Active Substance: OLANZAPINE
     Dates: start: 20220712, end: 20220719
  11. LITHIUM [Concomitant]
     Active Substance: LITHIUM
     Dates: start: 2018

REACTIONS (1)
  - COVID-19 [Recovered/Resolved]

NARRATIVE: CASE EVENT DATE: 20220802
